FAERS Safety Report 9095924 (Version 1)
Quarter: 2013Q1

REPORT INFORMATION
  Report Type: Report from Study
  Country: US (occurrence: US)
  Receive Date: 20130219
  Receipt Date: 20130219
  Transmission Date: 20140127
  Serious: Yes (Hospitalization)
  Sender: FDA-Public Use
  Company Number: US-ACTELION-A-US2013-79159

PATIENT
  Age: 79 Year
  Sex: Female

DRUGS (9)
  1. TRACLEER [Suspect]
     Indication: PULMONARY ARTERIAL HYPERTENSION
     Dosage: 125 MG, BID
     Route: 048
     Dates: start: 20090611, end: 201301
  2. TRACLEER [Suspect]
     Dosage: UNK
     Route: 048
     Dates: start: 20080416
  3. VENTAVIS [Suspect]
     Indication: PULMONARY ARTERIAL HYPERTENSION
     Dosage: UNK
     Route: 055
     Dates: start: 2010
  4. TORSEMIDE [Concomitant]
     Dosage: 20 MG, BID
  5. LEVOTHYROXIN [Concomitant]
     Dosage: 125 MCG, QD
  6. PROZAC [Concomitant]
     Dosage: 20 MG, QD
  7. WARFARIN [Concomitant]
     Dosage: UNK
     Dates: start: 200101
  8. AMITRIPTYLINE [Concomitant]
     Dosage: 25 MG, QD
  9. LIPITOR [Concomitant]

REACTIONS (8)
  - Heart rate increased [Recovered/Resolved]
  - Cardioversion [Recovered/Resolved]
  - Catheterisation cardiac [Unknown]
  - Blood cholesterol increased [Not Recovered/Not Resolved]
  - Pulmonary arterial pressure increased [Not Recovered/Not Resolved]
  - Thyroid function test abnormal [Not Recovered/Not Resolved]
  - Osteoporosis [Not Recovered/Not Resolved]
  - Headache [Unknown]
